FAERS Safety Report 4359461-9 (Version None)
Quarter: 2004Q2

REPORT INFORMATION
  Report Type: 
  Country: None (occurrence: None)
  Receive Date: 20040514
  Receipt Date: 20040514
  Transmission Date: 20050107
  Serious: Yes (Hospitalization)
  Sender: FDA-Public Use
  Company Number: None

PATIENT
  Age: 74 Year
  Sex: Male

DRUGS (8)
  1. METFORMIN HCL [Suspect]
     Indication: DIABETES MELLITUS NON-INSULIN-DEPENDENT
     Dosage: 1000 MG BID
     Dates: start: 20011201
  2. GLYBURIDE [Suspect]
     Indication: DIABETES MELLITUS NON-INSULIN-DEPENDENT
     Dosage: 10 MG QD
     Dates: start: 20000301
  3. ETODOLAC [Concomitant]
  4. LISINOPRIL [Concomitant]
  5. RISPERIDONE [Concomitant]
  6. ZOCOR [Concomitant]
  7. THEOPHYLLINE [Concomitant]
  8. TRAZODONE HCL [Concomitant]

REACTIONS (1)
  - HYPOGLYCAEMIA [None]
